FAERS Safety Report 20524811 (Version 5)
Quarter: 2022Q2

REPORT INFORMATION
  Report Type: Spontaneous
  Country: KR (occurrence: KR)
  Receive Date: 20220228
  Receipt Date: 20220412
  Transmission Date: 20220721
  Serious: Yes (Hospitalization, Other)
  Sender: FDA-Public Use
  Company Number: KR-SA-SAC20220222000111

PATIENT
  Age: 26 Year
  Sex: Male

DRUGS (1)
  1. DUPIXENT [Suspect]
     Active Substance: DUPILUMAB
     Indication: Dermatitis atopic
     Dosage: 300 MG, QOW
     Route: 058

REACTIONS (2)
  - Injury associated with device [Recovered/Resolved with Sequelae]
  - Needle issue [Recovered/Resolved with Sequelae]

NARRATIVE: CASE EVENT DATE: 20220216
